FAERS Safety Report 4316922-6 (Version None)
Quarter: 2004Q1

REPORT INFORMATION
  Report Type: 
  Country: None (occurrence: None)
  Receive Date: 20040308
  Receipt Date: 20040129
  Transmission Date: 20041129
  Serious: No
  Sender: FDA-Public Use
  Company Number: ALMO02004008

PATIENT
  Age: 30 Year
  Sex: Male

DRUGS (1)
  1. ALMOGRAN [Suspect]
     Indication: MIGRAINE WITH AURA
     Dosage: 12.5 MG DAILY PO
     Route: 048
     Dates: start: 20031101

REACTIONS (1)
  - TRISMUS [None]
